FAERS Safety Report 13384721 (Version 1)
Quarter: 2017Q1

REPORT INFORMATION
  Report Type: Spontaneous
  Country: AU (occurrence: AU)
  Receive Date: 20170329
  Receipt Date: 20170329
  Transmission Date: 20170429
  Serious: Yes (Other)
  Sender: FDA-Public Use
  Company Number: PHHY2017AU044968

PATIENT
  Sex: Male

DRUGS (2)
  1. VOLTAREN [Suspect]
     Active Substance: DICLOFENAC SODIUM
     Indication: PRODUCT USED FOR UNKNOWN INDICATION
     Dosage: UNK, BID (ONE IN THE MORNING, ONE AT NIGHT)
     Route: 065
  2. VOLTAREN [Suspect]
     Active Substance: DICLOFENAC SODIUM
     Dosage: UNK (TWO AT ONCE)
     Route: 065

REACTIONS (4)
  - Vision blurred [Unknown]
  - Dizziness [Unknown]
  - Drug administration error [Unknown]
  - Heart rate increased [Unknown]
